FAERS Safety Report 9464330 (Version 2)
Quarter: 2013Q3

REPORT INFORMATION
  Report Type: Report from Study
  Country: BR (occurrence: BR)
  Receive Date: 20130819
  Receipt Date: 20130827
  Transmission Date: 20140515
  Serious: Yes (Other)
  Sender: FDA-Public Use
  Company Number: PHHY2013BR088777

PATIENT
  Age: 89 Year
  Sex: Female
  Weight: 62 kg

DRUGS (5)
  1. EXELON PATCH [Suspect]
     Indication: CEREBRAL HYPOPERFUSION
     Dosage: 4.6 MG, DAILY (PATCH 5 CM2)
     Route: 062
     Dates: start: 20130803
  2. EXELON PATCH [Suspect]
     Indication: OFF LABEL USE
     Dosage: 2 DF, DAILY (4.6 MG, DAILY)
     Route: 062
     Dates: start: 20130813
  3. LABIRIN [Concomitant]
     Indication: LABYRINTHITIS
     Dosage: 1 DF, DAILY
  4. LEXAPRO [Concomitant]
     Indication: DEPRESSION
     Dosage: 1 DF, DAILY
  5. FRONTAL [Concomitant]
     Indication: SLEEP DISORDER
     Dosage: 1.5 MG, DAILY

REACTIONS (9)
  - Memory impairment [Not Recovered/Not Resolved]
  - Abasia [Not Recovered/Not Resolved]
  - Dysstasia [Not Recovered/Not Resolved]
  - Speech disorder [Not Recovered/Not Resolved]
  - Pain in extremity [Not Recovered/Not Resolved]
  - Movement disorder [Recovering/Resolving]
  - Aphasia [Recovering/Resolving]
  - General physical health deterioration [Recovering/Resolving]
  - Drug prescribing error [Unknown]
